FAERS Safety Report 9693927 (Version 2)
Quarter: 2013Q4

REPORT INFORMATION
  Report Type: Spontaneous
  Country: US (occurrence: US)
  Receive Date: 20131118
  Receipt Date: 20131227
  Transmission Date: 20140711
  Serious: Yes (Hospitalization)
  Sender: FDA-Public Use
  Company Number: US-B.I. PHARMACEUTICALS,INC./RIDGEFIELD-2013-BI-36928BP

PATIENT
  Sex: Male
  Weight: 140.61 kg

DRUGS (7)
  1. PRADAXA [Suspect]
     Dosage: 150 MG
     Dates: start: 20111012, end: 20111109
  2. ALFUZOSIN [Concomitant]
     Dosage: 10 MG
     Route: 048
  3. NEURONTIN [Concomitant]
     Dosage: 600 MG
     Route: 048
     Dates: start: 20111121
  4. CORDARONE [Concomitant]
     Indication: ARRHYTHMIA
     Dosage: 600 MG
     Route: 048
  5. CORDARONE [Concomitant]
     Indication: CARDIOMYOPATHY
  6. TOPROL XL [Concomitant]
     Dosage: 100 MG
     Route: 048
     Dates: start: 2010
  7. MULTIVITAMIN [Concomitant]
     Route: 048

REACTIONS (3)
  - Gastrointestinal haemorrhage [Unknown]
  - Haemorrhagic anaemia [Unknown]
  - Large intestinal haemorrhage [Unknown]
